FAERS Safety Report 8057919-2 (Version None)
Quarter: 2012Q1

REPORT INFORMATION
  Report Type: 
  Country: None (occurrence: None)
  Receive Date: 20120120
  Receipt Date: 20110404
  Transmission Date: 20120608
  Serious: Yes (Other)
  Sender: FDA-Public Use
  Company Number: US-BAYER-200929397NA

PATIENT
  Age: 78 Year
  Sex: Female
  Weight: 67.159 kg

DRUGS (23)
  1. MAGNEVIST [Suspect]
     Indication: NUCLEAR MAGNETIC RESONANCE IMAGING
     Dates: start: 20010403, end: 20010403
  2. SENSIPAR [Concomitant]
  3. DIOVAN [Concomitant]
  4. CATAPRES [Concomitant]
  5. NORVASC [Concomitant]
  6. HECTOROL [Concomitant]
  7. ULTRAVIST 300 [Concomitant]
     Indication: COMPUTERISED TOMOGRAM ABDOMEN
     Route: 042
     Dates: start: 20071030, end: 20071030
  8. PROHANCE [Suspect]
     Indication: NUCLEAR MAGNETIC RESONANCE IMAGING
  9. MULTIHANCE [Suspect]
     Indication: NUCLEAR MAGNETIC RESONANCE IMAGING
  10. IOPAMIDOL [Concomitant]
     Indication: ANGIOGRAM
     Dates: start: 20071018, end: 20071018
  11. COZAAR [Concomitant]
  12. ISOSORBIDE DINITRATE [Concomitant]
  13. CORTICOSTEROIDS [Concomitant]
     Indication: PREMEDICATION
     Dates: start: 20071001, end: 20071001
  14. OMNISCAN [Suspect]
     Indication: NUCLEAR MAGNETIC RESONANCE IMAGING
  15. VASOTEC [Concomitant]
  16. ALDACTONE [Concomitant]
  17. TOPROL-XL [Concomitant]
  18. TENORMIN [Concomitant]
  19. OPTIMARK [Suspect]
     Indication: NUCLEAR MAGNETIC RESONANCE IMAGING
  20. MINOXIDIL [Concomitant]
  21. NEPHROCAPS [Concomitant]
  22. RENAGEL [Concomitant]
  23. ZEMPLAR [Concomitant]

REACTIONS (5)
  - NEPHROGENIC SYSTEMIC FIBROSIS [None]
  - PAIN [None]
  - SKIN SWELLING [None]
  - FIBROSIS [None]
  - SKIN TIGHTNESS [None]
